FAERS Safety Report 23678795 (Version 1)
Quarter: 2024Q1

REPORT INFORMATION
  Report Type: Spontaneous
  Country: BR (occurrence: BR)
  Receive Date: 20240327
  Receipt Date: 20240327
  Transmission Date: 20240410
  Serious: Yes (Other)
  Sender: FDA-Public Use
  Company Number: BR-ORGANON-O2403BRA002777

PATIENT
  Age: 90 Year
  Sex: Female
  Weight: 64 kg

DRUGS (14)
  1. VYTORIN [Suspect]
     Active Substance: EZETIMIBE\SIMVASTATIN
     Indication: Blood cholesterol
     Dosage: 1 DOSAGE FORM, QD (1 TABLET DAILY, AT NIGHT - DURING DINNER)
     Route: 048
  2. DOMPERIDONE [Concomitant]
     Active Substance: DOMPERIDONE
     Indication: Digestive enzyme abnormal
     Dosage: 10 MILLIGRAM, QD (1 TABLET PER DAY)
     Route: 048
  3. ESOMEPRAZOLE [Concomitant]
     Active Substance: ESOMEPRAZOLE
     Indication: Digestive enzyme abnormal
     Dosage: 20 MILLIGRAM, QD (1 TABLET PER DAY)
     Route: 048
  4. LEVOTHYROXINE [Concomitant]
     Active Substance: LEVOTHYROXINE\LEVOTHYROXINE SODIUM
     Indication: Thyroid disorder
     Dosage: 50 MILLIGRAM, QD 1 TABLET PER DAY)
     Route: 048
  5. DIOVAN [Concomitant]
     Active Substance: VALSARTAN
     Indication: Blood pressure abnormal
     Dosage: 80 MILLIGRAM, QD (1 TABLET PER DAY)
     Route: 048
  6. FOLIC ACID [Concomitant]
     Active Substance: FOLIC ACID
     Dosage: 1 TABLET PER DAY, QD
     Route: 048
  7. PREGABALIN [Concomitant]
     Active Substance: PREGABALIN
     Indication: Arthralgia
     Dosage: 75 MILLIGRAM (1 TABLET PER DAY)
     Route: 048
  8. CALCIUM CARBONATE\CHOLECALCIFEROL [Concomitant]
     Active Substance: CALCIUM CARBONATE\CHOLECALCIFEROL
     Dosage: 1 TABLET PER DAY
     Route: 048
  9. VENLAFAXINE [Concomitant]
     Active Substance: VENLAFAXINE HYDROCHLORIDE
     Indication: Muscle relaxant therapy
     Dosage: 50 MILLIGRAM
     Route: 048
  10. CONDRESS [Concomitant]
     Dosage: 1 TABLET PER DAY
     Route: 048
  11. PIASCLEDINE 300 [Concomitant]
     Indication: Arthralgia
     Dosage: 300 MILLIGRAM, QD (1 TABLET PER DAY)
     Route: 048
  12. ESCITALOPRAM OXALATE [Concomitant]
     Active Substance: ESCITALOPRAM OXALATE
     Dosage: 10 MILLIGRAM (1 TABLET PER DAY)
  13. RIVOTRIL [Concomitant]
     Active Substance: CLONAZEPAM
     Indication: Blood cholesterol
     Dosage: 0.5 MILLIGRAM (HALF A TABLET PER DAY)
     Route: 048
  14. BENSERAZIDE\LEVODOPA [Concomitant]
     Active Substance: BENSERAZIDE\LEVODOPA
     Indication: Parkinson^s disease
     Dosage: UNK (100/15MG, USED 4 TIMES A DAY EVERY 4 HOURS)

REACTIONS (4)
  - Parkinson^s disease [Unknown]
  - Gait disturbance [Unknown]
  - Product availability issue [Unknown]
  - Product dose omission issue [Unknown]

NARRATIVE: CASE EVENT DATE: 20220101
